FAERS Safety Report 8483999-6 (Version None)
Quarter: 2012Q3

REPORT INFORMATION
  Report Type: 
  Country: None (occurrence: None)
  Receive Date: 20120703
  Receipt Date: 20120627
  Transmission Date: 20120928
  Serious: No
  Sender: FDA-Public Use
  Company Number: US-PFIZER INC-2012155727

PATIENT
  Sex: Male

DRUGS (1)
  1. CAMPTOSAR [Suspect]
     Indication: RECTAL CANCER
     Dosage: 340 MG, EVERY 2 WEEKS
     Dates: start: 20120306

REACTIONS (2)
  - RECTAL CANCER [None]
  - DISEASE PROGRESSION [None]
